FAERS Safety Report 13886214 (Version 1)
Quarter: 2017Q3

REPORT INFORMATION
  Report Type: Spontaneous
  Country: GB (occurrence: GB)
  Receive Date: 20170821
  Receipt Date: 20170821
  Transmission Date: 20171127
  Serious: Yes (Other)
  Sender: FDA-Public Use
  Company Number: GB-BAYER-2017-157609

PATIENT
  Age: 44 Year
  Sex: Female

DRUGS (1)
  1. MIRENA [Suspect]
     Active Substance: LEVONORGESTREL
     Dosage: 20 MCG/24HR, CONT
     Route: 015
     Dates: start: 20120517

REACTIONS (5)
  - Device difficult to use [None]
  - Complication of device removal [None]
  - Device expulsion [None]
  - Device breakage [None]
  - Device use issue [None]

NARRATIVE: CASE EVENT DATE: 20170613
